FAERS Safety Report 15372296 (Version 1)
Quarter: 2018Q3

REPORT INFORMATION
  Report Type: Report from Study
  Country: US (occurrence: US)
  Receive Date: 20180911
  Receipt Date: 20180911
  Transmission Date: 20181010
  Serious: Yes (Hospitalization, Other)
  Sender: FDA-Public Use
  Company Number: US-GILEAD-2018-0361591

PATIENT
  Sex: Female

DRUGS (15)
  1. DOK [Concomitant]
     Active Substance: DOCUSATE SODIUM
  2. MONTELUKAST [Concomitant]
     Active Substance: MONTELUKAST SODIUM
  3. LORATADINE. [Concomitant]
     Active Substance: LORATADINE
  4. AZTREONAM LYSINE [Suspect]
     Active Substance: AZTREONAM LYSINE
     Dosage: 75 MG, TID
     Route: 055
     Dates: start: 20180901
  5. SYMDEKO [Concomitant]
     Active Substance: IVACAFTOR\TEZACAFTOR
  6. CYPROHEPTADIN [Concomitant]
  7. ZENPEP [Concomitant]
     Active Substance: PANCRELIPASE AMYLASE\PANCRELIPASE LIPASE\PANCRELIPASE PROTEASE
  8. AZTREONAM LYSINE [Suspect]
     Active Substance: AZTREONAM LYSINE
     Indication: CYSTIC FIBROSIS
     Dosage: UNK
     Route: 065
  9. ALBUTEROL                          /00139501/ [Concomitant]
     Active Substance: ALBUTEROL
  10. PULMOZYME [Concomitant]
     Active Substance: DORNASE ALFA
  11. MINOCYCLINE [Concomitant]
     Active Substance: MINOCYCLINE\MINOCYCLINE HYDROCHLORIDE
  12. DULERA [Concomitant]
     Active Substance: FORMOTEROL FUMARATE DIHYDRATE\MOMETASONE FUROATE
  13. TOBI [Concomitant]
     Active Substance: TOBRAMYCIN
  14. PROAIR HFA [Concomitant]
     Active Substance: ALBUTEROL SULFATE
  15. LINEZOLID. [Concomitant]
     Active Substance: LINEZOLID

REACTIONS (1)
  - Cystic fibrosis [Unknown]
